FAERS Safety Report 6635162-9 (Version None)
Quarter: 2010Q1

REPORT INFORMATION
  Report Type: 
  Country: None (occurrence: None)
  Receive Date: 20100315
  Receipt Date: 20100310
  Transmission Date: 20100710
  Serious: Yes (Life-Threatening, Hospitalization)
  Sender: FDA-Public Use
  Company Number: PHHY2010JP14515

PATIENT
  Age: 54 Year
  Sex: Female

DRUGS (2)
  1. CYCLOSPORINE [Suspect]
     Indication: INTERSTITIAL LUNG DISEASE
  2. PREDNISOLONE [Concomitant]
     Indication: DERMATOMYOSITIS
     Dosage: 15 MG DAILY

REACTIONS (8)
  - INTERSTITIAL LUNG DISEASE [None]
  - LIFE EXPECTANCY SHORTENED [None]
  - LUNG TRANSPLANT [None]
  - LUNG TRANSPLANT REJECTION [None]
  - MUSCULAR WEAKNESS [None]
  - PO2 DECREASED [None]
  - PULMONARY FIBROSIS [None]
  - RESPIRATORY DISORDER [None]
